FAERS Safety Report 18413405 (Version 1)
Quarter: 2020Q4

REPORT INFORMATION
  Report Type: Spontaneous
  Country: JP (occurrence: JP)
  Receive Date: 20201022
  Receipt Date: 20201022
  Transmission Date: 20210114
  Serious: Yes (Other)
  Sender: FDA-Public Use
  Company Number: JP-NOVAST LABORATORIES LTD.-2020NOV000319

PATIENT
  Age: 81 Year
  Sex: Male

DRUGS (3)
  1. FLUOROURACIL. [Suspect]
     Active Substance: FLUOROURACIL
     Indication: ADENOCARCINOMA GASTRIC
     Dosage: CYCLE 1 (80 PERCENT DOSE OF 5-FLUOROURACIL)
     Route: 042
  2. FLUOROURACIL. [Suspect]
     Active Substance: FLUOROURACIL
     Dosage: CYCLE 2 TO 7 (70 PERCENT DOSE OF 5-FLUOROURACIL)
     Route: 042
  3. LEUCOVORIN. [Concomitant]
     Active Substance: LEUCOVORIN
     Indication: ADENOCARCINOMA GASTRIC
     Dosage: 2 HOUR INFUSION EVERY 2 WEEKS
     Route: 042

REACTIONS (2)
  - Hyperammonaemia [Recovered/Resolved]
  - Pneumonitis [Recovered/Resolved]
